FAERS Safety Report 11155828 (Version 1)
Quarter: 2015Q2

REPORT INFORMATION
  Report Type: Spontaneous
  Country: US (occurrence: None)
  Receive Date: 20150529
  Receipt Date: 20150529
  Transmission Date: 20150821
  Serious: No
  Sender: FDA-Public Use
  Company Number: None

PATIENT
  Age: 62 Year
  Sex: Female

DRUGS (12)
  1. OXYBUTYNIN [Concomitant]
     Active Substance: OXYBUTYNIN
  2. PROBIOTIC [Concomitant]
     Active Substance: PROBIOTICS NOS
  3. GABAPENTIN. [Concomitant]
     Active Substance: GABAPENTIN
  4. TECFIDERA [Concomitant]
     Active Substance: DIMETHYL FUMARATE
  5. VENLAFAXINE [Concomitant]
     Active Substance: VENLAFAXINE HYDROCHLORIDE
  6. ASPIRIN. [Concomitant]
     Active Substance: ASPIRIN
  7. AMPYRA [Suspect]
     Active Substance: DALFAMPRIDINE
     Indication: MULTIPLE SCLEROSIS
     Route: 048
     Dates: start: 20150529
  8. BACLOFEN. [Concomitant]
     Active Substance: BACLOFEN
  9. AMITRIPTYLINE [Concomitant]
     Active Substance: AMITRIPTYLINE
  10. LISINOPRIL. [Concomitant]
     Active Substance: LISINOPRIL
  11. METHADONE [Concomitant]
     Active Substance: METHADONE HYDROCHLORIDE
  12. TRIAMCINOLONE ACETONIDE. [Concomitant]
     Active Substance: TRIAMCINOLONE ACETONIDE

REACTIONS (4)
  - Neutrophil count abnormal [None]
  - Lymphocyte count abnormal [None]
  - Laboratory test abnormal [None]
  - Urine analysis abnormal [None]

NARRATIVE: CASE EVENT DATE: 20150507
